FAERS Safety Report 7683334-7 (Version None)
Quarter: 2011Q3

REPORT INFORMATION
  Report Type: 
  Country: None (occurrence: None)
  Receive Date: 20110815
  Receipt Date: 20110808
  Transmission Date: 20111222
  Serious: Yes (Disabling, Other)
  Sender: FDA-Public Use
  Company Number: US-CEPHALON-US020450

PATIENT
  Sex: Female
  Weight: 36 kg

DRUGS (3)
  1. PROVIGIL [Suspect]
     Dosage: QAM/QHS
     Route: 048
     Dates: start: 20070601, end: 20070626
  2. NAMENDA [Concomitant]
     Indication: DEMENTIA ALZHEIMER'S TYPE
     Route: 048
  3. ARICEPT [Concomitant]
     Indication: DEMENTIA ALZHEIMER'S TYPE
     Route: 048

REACTIONS (5)
  - URINARY INCONTINENCE [None]
  - ABASIA [None]
  - URINE OUTPUT DECREASED [None]
  - ACTIVITIES OF DAILY LIVING IMPAIRED [None]
  - SOMNOLENCE [None]
